FAERS Safety Report 11472253 (Version 1)
Quarter: 2015Q3

REPORT INFORMATION
  Report Type: Spontaneous
  Country: US (occurrence: US)
  Receive Date: 20150908
  Receipt Date: 20150908
  Transmission Date: 20151125
  Serious: No
  Sender: FDA-Public Use
  Company Number: US-SA-2015SA087291

PATIENT
  Age: 50 Year
  Sex: Male

DRUGS (2)
  1. TOUJEO [Suspect]
     Active Substance: INSULIN GLARGINE
     Indication: DIABETES MELLITUS
     Dosage: DOSE 40
     Route: 058
     Dates: start: 20150531, end: 20150611
  2. SOLOSTAR [Concomitant]
     Active Substance: DEVICE
     Dates: start: 20150531, end: 20150611

REACTIONS (2)
  - Injection site pain [Recovered/Resolved]
  - Underdose [Unknown]
